FAERS Safety Report 21592101 (Version 1)
Quarter: 2022Q4

REPORT INFORMATION
  Report Type: Spontaneous
  Country: US (occurrence: None)
  Receive Date: 20221112
  Receipt Date: 20221112
  Transmission Date: 20230113
  Serious: Yes (Other)
  Sender: FDA-Public Use
  Company Number: None

PATIENT
  Age: 68 Year
  Sex: Female
  Weight: 72 kg

DRUGS (7)
  1. ACETAMINOPHEN\OXYCODONE HYDROCHLORIDE [Suspect]
     Active Substance: ACETAMINOPHEN\OXYCODONE HYDROCHLORIDE
     Indication: Pain
     Dates: start: 20221025, end: 20221111
  2. ESTRADIOL [Concomitant]
     Active Substance: ESTRADIOL
  3. PERCOCET [Concomitant]
     Active Substance: ACETAMINOPHEN\OXYCODONE HYDROCHLORIDE
  4. LEXAPRO [Concomitant]
     Active Substance: ESCITALOPRAM OXALATE
  5. VITAMINS [Concomitant]
     Active Substance: VITAMINS
  6. GLUTATHIONE [Concomitant]
     Active Substance: GLUTATHIONE
  7. VITAMIN B12 [Concomitant]
     Active Substance: CYANOCOBALAMIN

REACTIONS (4)
  - Drug ineffective [None]
  - Crying [None]
  - Product quality issue [None]
  - Product dispensing issue [None]

NARRATIVE: CASE EVENT DATE: 20221025
